FAERS Safety Report 9917364 (Version 1)
Quarter: 2014Q1

REPORT INFORMATION
  Report Type: Spontaneous
  Country: US (occurrence: US)
  Receive Date: 20140221
  Receipt Date: 20140221
  Transmission Date: 20141002
  Serious: Yes (Other)
  Sender: FDA-Public Use
  Company Number: US-ABBVIE-14P-163-1202311-00

PATIENT
  Age: 38 Year
  Sex: Female
  Weight: 111.23 kg

DRUGS (5)
  1. HUMIRA [Suspect]
     Indication: CROHN^S DISEASE
     Route: 058
     Dates: start: 2011
  2. HYCOSAMINE [Concomitant]
     Indication: PRODUCT USED FOR UNKNOWN INDICATION
  3. METHOTREXATE [Concomitant]
     Indication: CROHN^S DISEASE
  4. FOLIC ACID [Concomitant]
     Indication: VITAMIN SUPPLEMENTATION
  5. PREDNISONE [Concomitant]
     Indication: CROHN^S DISEASE

REACTIONS (3)
  - Local swelling [Recovered/Resolved]
  - Pain in extremity [Recovered/Resolved]
  - Deep vein thrombosis [Recovering/Resolving]
